FAERS Safety Report 4930732-8 (Version None)
Quarter: 2006Q1

REPORT INFORMATION
  Report Type: 
  Country: None (occurrence: None)
  Receive Date: 20060227
  Receipt Date: 20060213
  Transmission Date: 20060701
  Serious: Yes (Other)
  Sender: FDA-Public Use
  Company Number: 2006022082

PATIENT
  Age: 64 Year
  Sex: Female
  Weight: 63.5036 kg

DRUGS (6)
  1. DETROL LA [Suspect]
     Indication: POLLAKIURIA
     Dosage: 6 MG  (2 MG, 3 IN 1 D), ORAL
     Route: 048
  2. GALENIC /BENAZEPRIL/HYDROCHLOROTHIAZIDE/(BENAZEPRIL, HYDROCHLOROTHIAZI [Suspect]
     Indication: BLOOD PRESSURE INCREASED
     Dosage: 10/12.5 MG (DAILY INTERVAL: EVERY DAY), ORAL
     Route: 048
     Dates: start: 20060131, end: 20060206
  3. PREMARIN [Concomitant]
  4. VITAMINS (VITAMINS) [Concomitant]
  5. OSCAL (CALCIUM CARBONATE) [Concomitant]
  6. CRESTOR [Concomitant]

REACTIONS (5)
  - BLADDER DISORDER [None]
  - BLOOD PRESSURE INCREASED [None]
  - INTRAOCULAR PRESSURE INCREASED [None]
  - MICTURITION URGENCY [None]
  - POLLAKIURIA [None]
